FAERS Safety Report 15905357 (Version 3)
Quarter: 2019Q2

REPORT INFORMATION
  Report Type: Spontaneous
  Country: US (occurrence: US)
  Receive Date: 20190204
  Receipt Date: 20190524
  Transmission Date: 20190711
  Serious: Yes (Death, Other)
  Sender: FDA-Public Use
  Company Number: US-ASTRAZENECA-2018SF34603

PATIENT
  Sex: Female
  Weight: 86.2 kg

DRUGS (22)
  1. NEXIUM [Suspect]
     Active Substance: ESOMEPRAZOLE MAGNESIUM
     Indication: DYSPEPSIA
     Dosage: 40.0MG UNKNOWN
     Route: 048
     Dates: start: 20080116
  2. PREVACID [Suspect]
     Active Substance: LANSOPRAZOLE
     Route: 065
     Dates: start: 19961231, end: 20121201
  3. ASPIRIN. [Concomitant]
     Active Substance: ASPIRIN
  4. PRILOSEC [Suspect]
     Active Substance: OMEPRAZOLE MAGNESIUM
     Indication: DYSPEPSIA
     Route: 048
     Dates: start: 19910401, end: 20120101
  5. FLUTICASONE. [Concomitant]
     Active Substance: FLUTICASONE
  6. HYOSCYAMINE. [Concomitant]
     Active Substance: HYOSCYAMINE
  7. NEXIUM [Suspect]
     Active Substance: ESOMEPRAZOLE MAGNESIUM
     Indication: DYSPEPSIA
     Dosage: GENERIC40.0MG UNKNOWN
     Route: 065
     Dates: start: 20170209, end: 20171221
  8. ONDANSETRON [Concomitant]
     Active Substance: ONDANSETRON
  9. NEXIUM [Suspect]
     Active Substance: ESOMEPRAZOLE MAGNESIUM
     Indication: DYSPEPSIA
     Route: 048
     Dates: start: 20010301, end: 20080116
  10. PROTONIX [Suspect]
     Active Substance: PANTOPRAZOLE SODIUM
     Route: 065
     Dates: start: 20000301, end: 20161201
  11. HYDROCODONE/ACETAMINOPHENE [Concomitant]
  12. BUTALBITAL [Concomitant]
     Active Substance: BUTALBITAL
  13. LEVOCETIRIZINE [Concomitant]
     Active Substance: LEVOCETIRIZINE
  14. PROMETHAZINE [Concomitant]
     Active Substance: PROMETHAZINE\PROMETHAZINE HYDROCHLORIDE
  15. NEXIUM [Suspect]
     Active Substance: ESOMEPRAZOLE MAGNESIUM
     Indication: DYSPEPSIA
     Route: 048
     Dates: start: 20080620, end: 20171221
  16. NEXIUM [Suspect]
     Active Substance: ESOMEPRAZOLE MAGNESIUM
     Indication: DYSPEPSIA
     Dosage: 40.0MG UNKNOWN
     Route: 048
     Dates: start: 20080620, end: 20161216
  17. PRILOSEC [Suspect]
     Active Substance: OMEPRAZOLE MAGNESIUM
     Indication: DYSPEPSIA
     Dosage: GENERIC
     Route: 065
     Dates: start: 20090529, end: 20100218
  18. ZOLOFT [Concomitant]
     Active Substance: SERTRALINE HYDROCHLORIDE
  19. PREMARIN [Concomitant]
     Active Substance: ESTROGENS, CONJUGATED
  20. EPIDRIN [Concomitant]
     Active Substance: ACETAMINOPHEN\DICHLORALPHENAZONE\ISOMETHEPTENE
  21. AMITRIPTYLINE [Concomitant]
     Active Substance: AMITRIPTYLINE
  22. TERCONAZOLE. [Concomitant]
     Active Substance: TERCONAZOLE

REACTIONS (7)
  - Diabetes mellitus [Fatal]
  - Cardiac failure [Fatal]
  - Aspiration [Fatal]
  - Acute kidney injury [Unknown]
  - Hypertension [Fatal]
  - Renal injury [Unknown]
  - Chronic kidney disease [Unknown]
